FAERS Safety Report 4938635-X (Version None)
Quarter: 2006Q1

REPORT INFORMATION
  Report Type: 
  Country: None (occurrence: None)
  Receive Date: 20060306
  Receipt Date: 20060220
  Transmission Date: 20060701
  Serious: Yes (Other)
  Sender: FDA-Public Use
  Company Number: US200601001804

PATIENT
  Age: 7 Year
  Sex: Male

DRUGS (3)
  1. STRATTERA [Suspect]
     Dosage: SEE IMAGE
     Dates: start: 20050913, end: 20050917
  2. STRATTERA [Suspect]
     Dosage: SEE IMAGE
     Dates: start: 20050917, end: 20051015
  3. RISPERDAL /SWE/ (RISPERIDONE) [Concomitant]

REACTIONS (4)
  - GRAND MAL CONVULSION [None]
  - LEUKOENCEPHALOPATHY [None]
  - NUCLEAR MAGNETIC RESONANCE IMAGING BRAIN ABNORMAL [None]
  - POSTICTAL STATE [None]
